FAERS Safety Report 5799405-6 (Version None)
Quarter: 2008Q3

REPORT INFORMATION
  Report Type: 
  Country: None (occurrence: None)
  Receive Date: 20080703
  Receipt Date: 20080627
  Transmission Date: 20090109
  Serious: Yes (Other)
  Sender: FDA-Public Use
  Company Number: PR-PFIZER INC-2008054397

PATIENT
  Age: 30 Year
  Sex: Female

DRUGS (4)
  1. VIRACEPT [Suspect]
     Indication: HIV INFECTION
     Dosage: DAILY DOSE:2500MG
     Route: 048
  2. COMBIVIR [Suspect]
     Indication: HIV INFECTION
     Dosage: DAILY DOSE:900MG
     Route: 048
  3. INVIRASE [Suspect]
     Indication: HIV INFECTION
     Dosage: DAILY DOSE:2000MG
     Route: 048
  4. FORTOVASE [Suspect]
     Indication: HIV INFECTION
     Dosage: DAILY DOSE:200MG
     Route: 048

REACTIONS (1)
  - ABORTION SPONTANEOUS [None]
